FAERS Safety Report 11965766 (Version 6)
Quarter: 2018Q2

REPORT INFORMATION
  Report Type: Report from Study
  Country: DE (occurrence: DE)
  Receive Date: 20160127
  Receipt Date: 20180626
  Transmission Date: 20180711
  Serious: Yes (Hospitalization, Other)
  Sender: FDA-Public Use
  Company Number: PHHY2016DE006100

PATIENT
  Age: 45 Year
  Sex: Male
  Weight: 114.1 kg

DRUGS (3)
  1. LOSARTAN. [Concomitant]
     Active Substance: LOSARTAN
     Indication: HYPERTENSION
     Dosage: 100 MG, QD (1-0-0)
     Route: 065
     Dates: start: 20100429
  2. TASIGNA [Suspect]
     Active Substance: NILOTINIB
     Indication: CHRONIC MYELOID LEUKAEMIA
     Dosage: 600 MG, QD
     Route: 048
     Dates: start: 20150316
  3. ALLOBETA [Concomitant]
     Indication: HYPERURICAEMIA
     Dosage: 0.5 DF, QD (300 MG 0-0-1/2)
     Route: 065
     Dates: start: 20100429

REACTIONS (3)
  - Acute myocardial infarction [Recovered/Resolved]
  - Coronary artery disease [Unknown]
  - Type 2 diabetes mellitus [Unknown]

NARRATIVE: CASE EVENT DATE: 20150907
